FAERS Safety Report 8822451 (Version 2)
Quarter: 2012Q4

REPORT INFORMATION
  Report Type: 
  Country: US (occurrence: US)
  Receive Date: 20121003
  Receipt Date: 20121220
  Transmission Date: 20130627
  Serious: Yes (Death)
  Sender: FDA-Public Use
  Company Number: US-ELI_LILLY_AND_COMPANY-US201210000432

PATIENT
  Age: 64 Year
  Sex: Female
  Weight: 128.9 kg

DRUGS (6)
  1. ALIMTA [Suspect]
     Indication: LUNG CARCINOMA CELL TYPE UNSPECIFIED STAGE IV
     Dosage: 500 mg/m2, other
     Route: 042
     Dates: start: 20120717
  2. VITAMIN B12 [Concomitant]
     Dosage: 1000 mg, other
     Route: 058
     Dates: start: 20120709
  3. DEXAMETHASONE [Concomitant]
     Dosage: 4 mg, qd
     Dates: start: 20120812
  4. GRANISETRON [Concomitant]
  5. FOLIC ACID [Concomitant]
     Dosage: UNK
     Route: 048
     Dates: start: 20120709
  6. COUMADIN [Concomitant]
     Dosage: 10 mg, 3/W
     Dates: start: 20120806, end: 20120816

REACTIONS (3)
  - Malignant neoplasm progression [Fatal]
  - Candidiasis [Unknown]
  - Diarrhoea [Unknown]
